FAERS Safety Report 4263589-1 (Version None)
Quarter: 2004Q1

REPORT INFORMATION
  Report Type: 
  Country: None (occurrence: None)
  Receive Date: 20040105
  Receipt Date: 20031225
  Transmission Date: 20041129
  Serious: Yes (Other)
  Sender: FDA-Public Use
  Company Number: PHFR2003GB04974

PATIENT
  Age: 43 Year
  Sex: Female

DRUGS (1)
  1. CLOZARIL [Suspect]
     Indication: SCHIZOPHRENIA
     Dosage: 12.5MG/DAY
     Dates: start: 20031223, end: 20031224

REACTIONS (2)
  - HYPERSENSITIVITY [None]
  - PYREXIA [None]
